FAERS Safety Report 11716623 (Version 2)
Quarter: 2015Q4

REPORT INFORMATION
  Report Type: Spontaneous
  Country: US (occurrence: US)
  Receive Date: 20151104
  Receipt Date: 20151110
  Transmission Date: 20160304
  Serious: No
  Sender: FDA-Public Use
  Company Number: US-ELI_LILLY_AND_COMPANY-US201108000641

PATIENT
  Age: 69 Year
  Sex: Female

DRUGS (5)
  1. FORTEO [Suspect]
     Active Substance: TERIPARATIDE
     Dosage: 20 UG, QD
     Route: 058
  2. FORTEO [Suspect]
     Active Substance: TERIPARATIDE
     Dosage: 20 UG, QD
     Route: 058
  3. FORTEO [Suspect]
     Active Substance: TERIPARATIDE
     Dosage: 20 UG, QD
     Dates: end: 201206
  4. FORTEO [Suspect]
     Active Substance: TERIPARATIDE
     Dosage: 20 UG, QD
  5. FORTEO [Suspect]
     Active Substance: TERIPARATIDE
     Indication: OSTEOPOROSIS
     Dosage: 20 UG, QD
     Route: 058
     Dates: start: 201104

REACTIONS (14)
  - Foot operation [Unknown]
  - Constipation [Not Recovered/Not Resolved]
  - Rotator cuff syndrome [Unknown]
  - Musculoskeletal pain [Not Recovered/Not Resolved]
  - Vitamin D decreased [Unknown]
  - Bone disorder [Unknown]
  - Alopecia [Recovering/Resolving]
  - Glossodynia [Unknown]
  - Dizziness [Unknown]
  - Hypokinesia [Unknown]
  - Arthritis [Unknown]
  - Somnolence [Unknown]
  - Infrequent bowel movements [Unknown]
  - Rash [Unknown]

NARRATIVE: CASE EVENT DATE: 201106
